FAERS Safety Report 10012878 (Version 4)
Quarter: 2015Q1

REPORT INFORMATION
  Report Type: Report from Study
  Country: FR (occurrence: FR)
  Receive Date: 20140314
  Receipt Date: 20150112
  Transmission Date: 20150720
  Serious: Yes (Death, Hospitalization, Other)
  Sender: FDA-Public Use
  Company Number: FR-ABBVIE-10P-056-0647682-01

PATIENT
  Sex: Female
  Weight: 56 kg

DRUGS (11)
  1. IMUREL [Concomitant]
     Active Substance: AZATHIOPRINE SODIUM
     Indication: CROHN^S DISEASE
     Dates: start: 20090520
  2. HUMIRA [Suspect]
     Active Substance: ADALIMUMAB
     Indication: CROHN^S DISEASE
     Dosage: 160 MG (BASELINE)
     Route: 058
     Dates: start: 20080619, end: 20080619
  3. HUMIRA [Suspect]
     Active Substance: ADALIMUMAB
     Route: 058
     Dates: end: 20100420
  4. HUMIRA [Suspect]
     Active Substance: ADALIMUMAB
     Route: 058
     Dates: start: 20100420, end: 20100420
  5. DELURSAN [Concomitant]
     Active Substance: URSODIOL
     Indication: CELL DEATH
     Dates: start: 20090209
  6. AZATHIOPRINE. [Concomitant]
     Active Substance: AZATHIOPRINE
     Indication: CROHN^S DISEASE
     Dates: start: 20080222, end: 20101223
  7. HUMIRA [Suspect]
     Active Substance: ADALIMUMAB
     Dosage: 80 MG (WEEK 2)
     Route: 058
  8. ARIXTRA [Concomitant]
     Active Substance: FONDAPARINUX SODIUM
     Indication: THROMBOCYTOSIS
     Dates: start: 20071127
  9. SOLUPRED [Concomitant]
     Active Substance: PREDNISOLONE
     Indication: HEPATITIS
     Dates: start: 20090520, end: 20090526
  10. SOLUPRED [Concomitant]
     Active Substance: PREDNISOLONE
     Dates: start: 20090527, end: 20090602
  11. SOLUPRED [Concomitant]
     Active Substance: PREDNISOLONE
     Dates: start: 20090603

REACTIONS (2)
  - Lymphadenopathy [Fatal]
  - Colon cancer metastatic [Fatal]

NARRATIVE: CASE EVENT DATE: 20100413
